FAERS Safety Report 19449126 (Version 9)
Quarter: 2025Q2

REPORT INFORMATION
  Report Type: Report from Study
  Country: DE (occurrence: DE)
  Receive Date: 20210622
  Receipt Date: 20250602
  Transmission Date: 20250716
  Serious: Yes (Hospitalization, Other)
  Sender: TAKEDA
  Company Number: DE-TAKEDA-2021TUS038559

PATIENT
  Age: 51 Year
  Sex: Male

DRUGS (42)
  1. TEDUGLUTIDE [Suspect]
     Active Substance: TEDUGLUTIDE
     Indication: Short-bowel syndrome
     Dosage: 4.25 MILLIGRAM, QD
     Dates: start: 20190111, end: 20190310
  2. TEDUGLUTIDE [Suspect]
     Active Substance: TEDUGLUTIDE
     Dosage: 4 MILLIGRAM, QD
     Dates: start: 20190311
  3. TEDUGLUTIDE [Suspect]
     Active Substance: TEDUGLUTIDE
     Dosage: 3.8 MILLIGRAM, QD
     Dates: start: 201904, end: 20190822
  4. TEDUGLUTIDE [Suspect]
     Active Substance: TEDUGLUTIDE
     Dosage: 3.8 MILLIGRAM, 4/WEEK
     Dates: start: 20190823, end: 20190829
  5. TEDUGLUTIDE [Suspect]
     Active Substance: TEDUGLUTIDE
     Dosage: 2 MILLIGRAM, QD
     Dates: start: 20190830, end: 20191014
  6. TEDUGLUTIDE [Suspect]
     Active Substance: TEDUGLUTIDE
     Dosage: 2.5 MILLIGRAM, QD
     Dates: start: 20191015, end: 20191027
  7. TEDUGLUTIDE [Suspect]
     Active Substance: TEDUGLUTIDE
     Dosage: 3.5 MILLIGRAM, QD
     Dates: start: 20191028, end: 20200214
  8. TEDUGLUTIDE [Suspect]
     Active Substance: TEDUGLUTIDE
     Dosage: 3.2 MILLIGRAM, QD
     Dates: start: 20200218
  9. TEDUGLUTIDE [Suspect]
     Active Substance: TEDUGLUTIDE
     Dosage: 3.2 MILLIGRAM, 4/WEEK
     Dates: start: 20200810, end: 20200819
  10. TEDUGLUTIDE [Suspect]
     Active Substance: TEDUGLUTIDE
     Dosage: 2.6 MILLIGRAM, QD
     Dates: start: 20200820, end: 202010
  11. TEDUGLUTIDE [Suspect]
     Active Substance: TEDUGLUTIDE
     Dosage: 3.2 MILLIGRAM, QD
     Dates: start: 202010, end: 20210410
  12. TEDUGLUTIDE [Suspect]
     Active Substance: TEDUGLUTIDE
     Dates: start: 20210412, end: 20210831
  13. TEDUGLUTIDE [Suspect]
     Active Substance: TEDUGLUTIDE
     Dosage: 3.2 MILLIGRAM, 4/WEEK
     Dates: start: 20210901, end: 20210909
  14. TEDUGLUTIDE [Suspect]
     Active Substance: TEDUGLUTIDE
     Dates: start: 20210909, end: 20210923
  15. TEDUGLUTIDE [Suspect]
     Active Substance: TEDUGLUTIDE
     Dates: start: 20210924, end: 20211025
  16. TEDUGLUTIDE [Suspect]
     Active Substance: TEDUGLUTIDE
  17. TEDUGLUTIDE [Suspect]
     Active Substance: TEDUGLUTIDE
  18. TEDUGLUTIDE [Suspect]
     Active Substance: TEDUGLUTIDE
  19. TEDUGLUTIDE [Suspect]
     Active Substance: TEDUGLUTIDE
  20. TEDUGLUTIDE [Suspect]
     Active Substance: TEDUGLUTIDE
  21. TEDUGLUTIDE [Suspect]
     Active Substance: TEDUGLUTIDE
     Dates: start: 20230614, end: 20231022
  22. TEDUGLUTIDE [Suspect]
     Active Substance: TEDUGLUTIDE
     Dates: start: 20231023, end: 20240409
  23. TEDUGLUTIDE [Suspect]
     Active Substance: TEDUGLUTIDE
     Dates: start: 20240410, end: 20250105
  24. TEDUGLUTIDE [Suspect]
     Active Substance: TEDUGLUTIDE
     Dates: start: 20250106, end: 20250114
  25. TEDUGLUTIDE [Suspect]
     Active Substance: TEDUGLUTIDE
     Dates: start: 20250115, end: 20250421
  26. TEDUGLUTIDE [Suspect]
     Active Substance: TEDUGLUTIDE
  27. NEUROBION FORTE [Concomitant]
     Active Substance: CYANOCOBALAMIN\PYRIDOXINE HYDROCHLORIDE\THIAMINE DISULFIDE
     Indication: Vitamin B6 deficiency
     Dosage: 82.27 MILLIGRAM, QD
     Dates: start: 20210308
  28. Unacid [Concomitant]
     Indication: Infection
     Dosage: 750 MILLIGRAM, BID
     Dates: start: 20210205, end: 20210209
  29. CEPHALEXIN [Concomitant]
     Active Substance: CEPHALEXIN
     Indication: Wound
     Dosage: 1000 MILLIGRAM, QD
     Dates: start: 20210107, end: 20210115
  30. TRAMADOL [Concomitant]
     Active Substance: TRAMADOL
     Indication: Flank pain
     Dosage: 15 GTT DROPS, TID
     Dates: start: 20201102
  31. ASPIRIN [Concomitant]
     Active Substance: ASPIRIN
     Indication: Prophylaxis
     Dosage: 100 MILLIGRAM, QD
     Dates: start: 2018
  32. AMOXICILLIN\CLAVULANATE POTASSIUM [Concomitant]
     Active Substance: AMOXICILLIN\CLAVULANATE POTASSIUM
     Indication: Urinary tract infection
     Dosage: 875 MILLIGRAM, TID
     Dates: start: 20221109, end: 20221115
  33. AMOXICILLIN\CLAVULANATE POTASSIUM [Concomitant]
     Active Substance: AMOXICILLIN\CLAVULANATE POTASSIUM
     Indication: Pyrexia
  34. INFLIXIMAB [Concomitant]
     Active Substance: INFLIXIMAB
     Indication: Crohn^s disease
     Dosage: 120 MILLIGRAM, Q2WEEKS
     Dates: start: 202211
  35. VITAMIN B12 [Concomitant]
     Active Substance: CYANOCOBALAMIN
     Indication: Vitamin B12 deficiency
  36. CITALOPRAM [Concomitant]
     Active Substance: CITALOPRAM
     Indication: Depression
     Dosage: 20 MILLIGRAM, QD
     Dates: start: 20221111
  37. POTASSIUM CHLORIDE [Concomitant]
     Active Substance: POTASSIUM CHLORIDE
     Dosage: 600 MILLIGRAM, TID
  38. IBUPROFEN [Concomitant]
     Active Substance: IBUPROFEN
     Indication: Arthralgia
     Dosage: 600 MILLIGRAM, QD
     Dates: start: 201907
  39. Selenase [Concomitant]
     Indication: Selenium deficiency
     Dosage: 100 MICROGRAM, QD
     Dates: start: 20200910
  40. Mebeverin aristo [Concomitant]
     Indication: Abdominal pain
     Dosage: 200 MILLIGRAM, BID
     Dates: start: 20220225
  41. PREGABALIN [Concomitant]
     Active Substance: PREGABALIN
     Indication: Pain
     Dosage: 150 MILLIGRAM, TID
     Dates: start: 202305
  42. FENTANYL [Concomitant]
     Active Substance: FENTANYL
     Indication: Pain

REACTIONS (3)
  - Vascular device infection [Recovered/Resolved]
  - Hepatic fibrosis [Recovered/Resolved]
  - Fructose intolerance [Not Recovered/Not Resolved]

NARRATIVE: CASE EVENT DATE: 20210601
